FAERS Safety Report 7762073-8 (Version None)
Quarter: 2011Q3

REPORT INFORMATION
  Report Type: 
  Country: None (occurrence: None)
  Receive Date: 20110920
  Receipt Date: 20110920
  Transmission Date: 20111222
  Serious: Yes (Life-Threatening, Hospitalization)
  Sender: FDA-Public Use
  Company Number: None

PATIENT
  Age: 44 Year
  Sex: Male
  Weight: 96.5 kg

DRUGS (16)
  1. HUMALOG [Concomitant]
  2. NITROGLYCERIN -NITROSTAT [Concomitant]
  3. PLAVIX [Concomitant]
  4. COLACE [Concomitant]
  5. ISORDIL [Concomitant]
  6. MONOPRIL [Concomitant]
  7. NEURONTIN [Concomitant]
  8. DEXTROSE 5% / 0.45% NORMAL SALINE [Concomitant]
  9. HEPARIN SODIUM [Concomitant]
  10. ACETAMINOPHEN [Concomitant]
  11. IBUPROFEN [Concomitant]
  12. METOPROLOL TARTRATE [Concomitant]
  13. ASPIRIN [Concomitant]
  14. LIPITOR [Concomitant]
  15. ZOFRAN [Suspect]
     Indication: ANTIEMETIC SUPPORTIVE CARE
     Dosage: 4 MG -2 ML-
     Route: 042
     Dates: start: 20110913, end: 20110913
  16. SODIUM CHLORIDE [Concomitant]

REACTIONS (5)
  - NEUROCYSTICERCOSIS [None]
  - UNRESPONSIVE TO STIMULI [None]
  - CARDIO-RESPIRATORY ARREST [None]
  - CONVERSION DISORDER [None]
  - MIGRAINE [None]
